FAERS Safety Report 8792858 (Version 2)
Quarter: 2012Q4

REPORT INFORMATION
  Report Type: 
  Country: US (occurrence: US)
  Receive Date: 20120918
  Receipt Date: 20120923
  Transmission Date: 20130627
  Serious: Yes (Death, Hospitalization)
  Sender: FDA-Public Use
  Company Number: US-009507513-1209USA004284

PATIENT
  Age: 84 Year
  Sex: Female

DRUGS (2)
  1. TEMODAR [Suspect]
     Indication: GLIOBLASTOMA MULTIFORME
     Dosage: 100 mg, hs
     Route: 048
     Dates: start: 20120730, end: 20120731
  2. TEMODAR [Suspect]
     Dosage: 25 mg, hs
     Route: 048
     Dates: start: 20120730, end: 20120731

REACTIONS (1)
  - Pneumonia [Fatal]
